FAERS Safety Report 4549348-0 (Version None)
Quarter: 2005Q1

REPORT INFORMATION
  Report Type: 
  Country: None (occurrence: None)
  Receive Date: 20050106
  Receipt Date: 20041220
  Transmission Date: 20050727
  Serious: Yes (Death, Life-Threatening)
  Sender: FDA-Public Use
  Company Number: EWC041241996

PATIENT
  Age: 76 Year
  Sex: Female
  Weight: 70 kg

DRUGS (14)
  1. XIGRIS [Suspect]
     Indication: SEPTIC SHOCK
     Dosage: 24 UG/KG/HR
     Dates: start: 20041214, end: 20041215
  2. ANTITHROMBIN III [Concomitant]
  3. HEPARIN [Concomitant]
  4. MIDAZOLAM HCL [Concomitant]
  5. CISATRACURIUM [Concomitant]
  6. FENTANYL [Concomitant]
  7. NORADRENALINE [Concomitant]
  8. DOPAMINE [Concomitant]
  9. DOBUTAMINE HCL [Concomitant]
  10. OMEPRAZOLE [Concomitant]
  11. IMIPENEM [Concomitant]
  12. TOBRAMYCIN [Concomitant]
  13. METRONIDAZOLE [Concomitant]
  14. VITAMIN K [Concomitant]

REACTIONS (12)
  - ACTIVATED PARTIAL THROMBOPLASTIN TIME PROLONGED [None]
  - ANTITHROMBIN III DECREASED [None]
  - BLOOD FIBRINOGEN INCREASED [None]
  - DISSEMINATED INTRAVASCULAR COAGULATION [None]
  - EPISTAXIS [None]
  - FIBRIN D DIMER INCREASED [None]
  - HAEMOGLOBIN DECREASED [None]
  - INJECTION SITE HAEMORRHAGE [None]
  - MULTI-ORGAN FAILURE [None]
  - OPERATIVE HAEMORRHAGE [None]
  - PLATELET COUNT DECREASED [None]
  - PROTHROMBIN TIME PROLONGED [None]
